FAERS Safety Report 11646740 (Version 2)
Quarter: 2016Q2

REPORT INFORMATION
  Report Type: Spontaneous
  Country: US (occurrence: US)
  Receive Date: 20151020
  Receipt Date: 20160504
  Transmission Date: 20160815
  Serious: No
  Sender: FDA-Public Use
  Company Number: US-ROCHE-ITM201505IM015139

PATIENT
  Age: 81 Year
  Sex: Male
  Weight: 83.99 kg

DRUGS (3)
  1. ESBRIET [Suspect]
     Active Substance: PIRFENIDONE
     Dosage: 3 CAPSULE
     Route: 048
     Dates: start: 20150317
  2. ESBRIET [Suspect]
     Active Substance: PIRFENIDONE
     Indication: IDIOPATHIC PULMONARY FIBROSIS
     Route: 048
     Dates: start: 20150205
  3. ESBRIET [Suspect]
     Active Substance: PIRFENIDONE
     Dosage: 3 CAPSULE
     Route: 048
     Dates: start: 20150319

REACTIONS (7)
  - Decreased appetite [Unknown]
  - Sunburn [Unknown]
  - Erythema [Unknown]
  - Weight decreased [Unknown]
  - Dysgeusia [Unknown]
  - Amnesia [Unknown]
  - Sciatica [Unknown]

NARRATIVE: CASE EVENT DATE: 201504
